FAERS Safety Report 8090685 (Version 2)
Quarter: 2012Q4

REPORT INFORMATION
  Report Type: 
  Country: US (occurrence: US)
  Receive Date: 20110815
  Receipt Date: 20120913
  Transmission Date: 20130627
  Serious: Yes (Disabling, Other)
  Sender: FDA-Public Use
  Company Number: US-ASTRAZENECA-2010SE43845

PATIENT
  Age: 81 Year
  Sex: Female

DRUGS (1)
  1. SYMBICORT PMDI [Suspect]
     Dosage: 160/4.5MCG INHALE 2 PUFFS
     Route: 055

REACTIONS (8)
  - Blindness [Unknown]
  - Macular degeneration [Unknown]
  - Periorbital haematoma [Unknown]
  - Dyspnoea [Unknown]
  - Multiple allergies [Unknown]
  - Malaise [Unknown]
  - Intentional drug misuse [Unknown]
  - Drug dose omission [Unknown]
